FAERS Safety Report 6165738-7 (Version None)
Quarter: 2009Q2

REPORT INFORMATION
  Report Type: 
  Country: None (occurrence: None)
  Receive Date: 20090422
  Receipt Date: 20090409
  Transmission Date: 20091009
  Serious: No
  Sender: FDA-Public Use
  Company Number: IE-000054

PATIENT
  Age: 15 Year
  Sex: Male

DRUGS (2)
  1. ZOMACTON (SOMATROPIN) INJECTION 2.6 MG [Suspect]
     Indication: GLUCOSE TOLERANCE IMPAIRED
     Dosage: 2.6 MG SUBCUTANEOUS
     Route: 058
     Dates: start: 20061001, end: 20090201
  2. ZOMACTON (SOMATROPIN) INJECTION 2.6 MG [Suspect]
     Indication: PRADER-WILLI SYNDROME
     Dosage: 2.6 MG SUBCUTANEOUS
     Route: 058
     Dates: start: 20061001, end: 20090201

REACTIONS (3)
  - BLOOD GLUCOSE INCREASED [None]
  - GLUCOSE TOLERANCE TEST ABNORMAL [None]
  - WEIGHT INCREASED [None]
